FAERS Safety Report 9802979 (Version 1)
Quarter: 2014Q1

REPORT INFORMATION
  Report Type: Spontaneous
  Country: US (occurrence: None)
  Receive Date: 20140106
  Receipt Date: 20140106
  Transmission Date: 20141002
  Serious: Yes (Life-Threatening, Hospitalization, Disabling)
  Sender: FDA-Public Use
  Company Number: None

PATIENT
  Age: 53 Year
  Sex: Female
  Weight: 101 kg

DRUGS (3)
  1. CLOZARIL [Suspect]
     Indication: SCHIZOAFFECTIVE DISORDER
     Route: 048
  2. ZYPREXA [Suspect]
     Route: 048
  3. LATUDA [Suspect]

REACTIONS (3)
  - Clonus [None]
  - Neuroleptic malignant syndrome [None]
  - Pancytopenia [None]
